FAERS Safety Report 9162580 (Version 1)
Quarter: 2013Q1

REPORT INFORMATION
  Report Type: Spontaneous
  Country: FR (occurrence: None)
  Receive Date: 20130222
  Receipt Date: 20130222
  Transmission Date: 20140127
  Serious: Yes (Hospitalization)
  Sender: FDA-Public Use
  Company Number: SYM-2013-00618

PATIENT
  Age: 90 Year
  Sex: Male

DRUGS (4)
  1. RENITEC [Suspect]
     Route: 048
  2. VALDOXAN [Suspect]
     Route: 048
     Dates: start: 20120920, end: 20121025
  3. ALPRAZOLAM (ALPRAZOLAM) (ALPRAZOLAM) [Suspect]
     Route: 048
     Dates: start: 20120910
  4. INEXIUM [Suspect]

REACTIONS (2)
  - Hyponatraemia [None]
  - Erysipelas [None]
